FAERS Safety Report 18475507 (Version 2)
Quarter: 2025Q2

REPORT INFORMATION
  Report Type: Spontaneous
  Country: US (occurrence: US)
  Receive Date: 20201107
  Receipt Date: 20250627
  Transmission Date: 20250717
  Serious: Yes (Life-Threatening, Hospitalization, Other)
  Sender: AUROBINDO
  Company Number: US-MLMSERVICE-20201020-2537535-1

PATIENT
  Age: 55 Year
  Sex: Male

DRUGS (3)
  1. METOPROLOL [Suspect]
     Active Substance: METOPROLOL
     Indication: Cardiac failure acute
     Route: 042
  2. AMIODARONE [Concomitant]
     Active Substance: AMIODARONE
     Indication: Cardiac failure acute
     Route: 065
  3. DILTIAZEM [Concomitant]
     Active Substance: DILTIAZEM
     Indication: Cardiac failure acute
     Route: 042

REACTIONS (4)
  - Lactic acidosis [Recovering/Resolving]
  - BRASH syndrome [Recovering/Resolving]
  - Coagulopathy [Recovering/Resolving]
  - Toxicity to various agents [Recovering/Resolving]
